FAERS Safety Report 9335551 (Version 3)
Quarter: 2013Q3

REPORT INFORMATION
  Report Type: Spontaneous
  Country: BR (occurrence: BR)
  Receive Date: 20130605
  Receipt Date: 20130726
  Transmission Date: 20140515
  Serious: Yes (Other)
  Sender: FDA-Public Use
  Company Number: BR-GLAXOSMITHKLINE-B0896300A

PATIENT
  Age: 11 Year
  Sex: Male
  Weight: 40 kg

DRUGS (4)
  1. ZINNAT [Suspect]
     Indication: SINUSITIS
     Dosage: 10ML TWICE PER DAY
     Route: 048
     Dates: start: 20130519, end: 20130520
  2. ZINNAT [Suspect]
     Indication: SINUSITIS
     Dosage: 250MG TWICE PER DAY
     Route: 048
     Dates: start: 20130520
  3. FLUIMUCIL [Concomitant]
  4. DECADRON [Concomitant]

REACTIONS (5)
  - Choking [Recovered/Resolved]
  - Abdominal pain [Recovered/Resolved]
  - Retching [Recovered/Resolved]
  - Decreased appetite [Recovered/Resolved]
  - Product quality issue [Unknown]
